FAERS Safety Report 7769987-3 (Version None)
Quarter: 2011Q3

REPORT INFORMATION
  Report Type: 
  Country: None (occurrence: None)
  Receive Date: 20110922
  Receipt Date: 20110113
  Transmission Date: 20111222
  Serious: No
  Sender: FDA-Public Use
  Company Number: US-ASTRAZENECA-2008UW18325

PATIENT
  Age: 14447 Day
  Sex: Female
  Weight: 90.7 kg

DRUGS (14)
  1. GABITRIL [Concomitant]
     Dosage: ONE TO TWO MG
     Route: 048
     Dates: start: 20030425
  2. ZANTAC [Concomitant]
     Dates: start: 20050928
  3. RISPERDAL [Concomitant]
     Route: 048
     Dates: start: 20030723
  4. CYMBALTA [Concomitant]
  5. SEROQUEL [Suspect]
     Dosage: 25 MG TWO TABLETS PO QAM AND 300 MG ONE TABLET PO QHS
     Route: 048
     Dates: start: 20030726
  6. CLONAZEPAM [Concomitant]
     Route: 048
     Dates: start: 20030723
  7. SEROQUEL [Suspect]
     Route: 048
     Dates: start: 20030801, end: 20031101
  8. SEROQUEL [Suspect]
     Route: 048
     Dates: start: 20081101
  9. WELLBUTRIN SR [Concomitant]
     Route: 048
     Dates: start: 20030723
  10. SEROQUEL [Suspect]
     Indication: SLEEP DISORDER
     Route: 048
     Dates: start: 20030701
  11. SEROQUEL [Suspect]
     Dosage: 100MG, 200MG
     Route: 048
     Dates: start: 20031101, end: 20060301
  12. INVEGA [Concomitant]
  13. TRAZODONE HCL [Concomitant]
  14. LEVAQUIN [Concomitant]
     Route: 048
     Dates: start: 20030707

REACTIONS (6)
  - NASOPHARYNGITIS [None]
  - DIABETES MELLITUS [None]
  - BLOOD CHOLESTEROL INCREASED [None]
  - FURUNCLE [None]
  - GLYCOSURIA [None]
  - HYPERCHOLESTEROLAEMIA [None]
